FAERS Safety Report 7037930-0 (Version None)
Quarter: 2010Q4

REPORT INFORMATION
  Report Type: 
  Country: None (occurrence: None)
  Receive Date: 20101011
  Receipt Date: 20101004
  Transmission Date: 20110411
  Serious: Yes (Hospitalization)
  Sender: FDA-Public Use
  Company Number: AR-WYE-H17955910

PATIENT
  Sex: Female
  Weight: 70 kg

DRUGS (6)
  1. SIROLIMUS [Suspect]
     Indication: IMMUNOSUPPRESSION
     Route: 048
     Dates: start: 20090422
  2. BEZALIP [Concomitant]
     Dosage: UNKNOWN
     Route: 065
     Dates: start: 20080428
  3. DELTASONE [Concomitant]
     Indication: IMMUNOSUPPRESSION
     Dosage: UNKNOWN
     Route: 065
     Dates: start: 20060705
  4. ESOMEPRAZOLE [Concomitant]
     Indication: GASTRITIS
     Dosage: UNKNOWN
     Route: 065
     Dates: start: 20080708
  5. MYFORTIC [Concomitant]
     Indication: IMMUNOSUPPRESSION
     Dosage: UNKNOWN
     Route: 065
     Dates: start: 20080805
  6. FOLIC ACID [Concomitant]
     Dosage: UNKNOWN
     Route: 065
     Dates: start: 20070401

REACTIONS (2)
  - CHRONIC OBSTRUCTIVE PULMONARY DISEASE [None]
  - CONDITION AGGRAVATED [None]
